FAERS Safety Report 19216998 (Version 1)
Quarter: 2021Q2

REPORT INFORMATION
  Report Type: Spontaneous
  Country: US (occurrence: US)
  Receive Date: 20210505
  Receipt Date: 20210505
  Transmission Date: 20210717
  Serious: No
  Sender: FDA-Public Use
  Company Number: None

PATIENT
  Age: 66 Year
  Sex: Male

DRUGS (1)
  1. HUMIRA [Suspect]
     Active Substance: ADALIMUMAB
     Indication: PSORIASIS
     Dosage: INJECT  80MG (2 PENS) SUBCUTANEOUSLY ON  DAY 1, 40MG (1 PEN) DAY 8 THEN 40MG EVERY OTHER WEEEK AS DIRECTED
     Route: 058
     Dates: start: 202010

REACTIONS (1)
  - Cellulitis [None]
